FAERS Safety Report 8089399-5 (Version None)
Quarter: 2012Q1

REPORT INFORMATION
  Report Type: 
  Country: None (occurrence: None)
  Receive Date: 20120128
  Receipt Date: 20110811
  Transmission Date: 20120608
  Serious: No
  Sender: FDA-Public Use
  Company Number: US-ABBOTT-11P-163-0724331-00

PATIENT
  Sex: Female
  Weight: 97.156 kg

DRUGS (20)
  1. PREDNISONE TAB [Concomitant]
     Indication: RHEUMATOID ARTHRITIS
  2. LIDOCAINE [Concomitant]
     Indication: PAIN
     Dosage: PATCHES, AS NEEDED
  3. ATIVAN [Concomitant]
     Indication: ANXIETY
  4. HUMIRA [Suspect]
     Indication: RHEUMATOID ARTHRITIS
     Dates: start: 20110429, end: 20110628
  5. VITAMIN D [Concomitant]
     Indication: VITAMIN SUPPLEMENTATION
  6. LANTUS [Concomitant]
     Indication: DIABETES MELLITUS
  7. POTASSIUM CHLORIDE [Concomitant]
     Indication: MINERAL SUPPLEMENTATION
  8. BACTROBAN [Concomitant]
     Indication: PRODUCT USED FOR UNKNOWN INDICATION
  9. ASCORBIC ACID [Concomitant]
     Indication: VITAMIN SUPPLEMENTATION
  10. SOMA [Concomitant]
     Indication: INSOMNIA
  11. GLUCOPHAGE [Concomitant]
     Indication: DIABETES MELLITUS
  12. NEXIUM [Concomitant]
     Indication: GASTROOESOPHAGEAL REFLUX DISEASE
  13. NEURONTIN [Concomitant]
     Indication: NEUROPATHY PERIPHERAL
  14. CELEBREX [Concomitant]
     Indication: RHEUMATOID ARTHRITIS
  15. METHOTREXATE [Concomitant]
     Indication: RHEUMATOID ARTHRITIS
  16. FOLIC ACID [Concomitant]
     Indication: VITAMIN SUPPLEMENTATION
  17. REQUIP [Concomitant]
     Indication: MUSCLE SPASMS
  18. MONOPRIL [Concomitant]
     Indication: HYPERTENSION
  19. VALTREX [Concomitant]
     Indication: PRODUCT USED FOR UNKNOWN INDICATION
  20. PERCOCET [Concomitant]
     Indication: PAIN

REACTIONS (3)
  - RENAL DISORDER [None]
  - FLANK PAIN [None]
  - BACK PAIN [None]
